FAERS Safety Report 9509452 (Version 1)
Quarter: 2013Q3

REPORT INFORMATION
  Report Type: Spontaneous
  Country: US (occurrence: US)
  Receive Date: 20130909
  Receipt Date: 20130909
  Transmission Date: 20140515
  Serious: Yes (Other)
  Sender: FDA-Public Use
  Company Number: US-BRISTOL-MYERS SQUIBB COMPANY-17270562

PATIENT
  Age: 13 Year
  Sex: Female

DRUGS (2)
  1. ABILIFY TABS 5 MG [Suspect]
     Dosage: REDUCED TO 2.5 MG
  2. ETHOSUXIMIDE [Suspect]

REACTIONS (10)
  - Petit mal epilepsy [Unknown]
  - Anger [Unknown]
  - Anxiety [Unknown]
  - Agitation [Recovering/Resolving]
  - Frustration [Recovering/Resolving]
  - Crying [Recovering/Resolving]
  - Muscle twitching [Recovering/Resolving]
  - Confusional state [Recovering/Resolving]
  - Dysarthria [Recovering/Resolving]
  - Dizziness [Recovering/Resolving]
